FAERS Safety Report 25214191 (Version 3)
Quarter: 2025Q2

REPORT INFORMATION
  Report Type: Spontaneous
  Country: FR (occurrence: FR)
  Receive Date: 20250418
  Receipt Date: 20250501
  Transmission Date: 20250717
  Serious: Yes (Other)
  Sender: PFIZER
  Company Number: None

PATIENT
  Age: 53 Year
  Sex: Male

DRUGS (3)
  1. TOVIAZ [Suspect]
     Active Substance: FESOTERODINE FUMARATE
     Indication: Pollakiuria
     Dosage: 8 MG, 1X/DAY
     Route: 048
     Dates: start: 20241101, end: 20250216
  2. VESICARE [Suspect]
     Active Substance: SOLIFENACIN SUCCINATE
     Indication: Pollakiuria
     Dosage: 10 MG, 1X/DAY
     Route: 048
     Dates: start: 20241101, end: 20250216
  3. SILODOSIN [Suspect]
     Active Substance: SILODOSIN
     Indication: Pollakiuria
     Dosage: 8 MG, 1X/DAY
     Route: 048
     Dates: start: 20241101, end: 20250216

REACTIONS (8)
  - Paraesthesia [Recovering/Resolving]
  - Paresis [Recovering/Resolving]
  - Dysphagia [Recovering/Resolving]
  - Constipation [Recovering/Resolving]
  - Proctalgia [Recovering/Resolving]
  - Dysuria [Recovering/Resolving]
  - Back pain [Recovering/Resolving]
  - Pyrexia [Unknown]

NARRATIVE: CASE EVENT DATE: 20250101
